FAERS Safety Report 12883368 (Version 1)
Quarter: 2016Q4

REPORT INFORMATION
  Report Type: Spontaneous
  Country: US (occurrence: US)
  Receive Date: 20161025
  Receipt Date: 20161025
  Transmission Date: 20170207
  Serious: No
  Sender: FDA-Public Use
  Company Number: US-TAKEDA-2016TUS019275

PATIENT
  Age: 76 Year
  Sex: Female

DRUGS (3)
  1. DEXILANT [Suspect]
     Active Substance: DEXLANSOPRAZOLE
     Indication: GASTROOESOPHAGEAL REFLUX DISEASE
     Dosage: 60 MG, UNK
     Route: 065
     Dates: start: 201609
  2. DEXILANT [Suspect]
     Active Substance: DEXLANSOPRAZOLE
     Indication: COUGH
  3. DEXILANT [Suspect]
     Active Substance: DEXLANSOPRAZOLE
     Indication: BURNING SENSATION

REACTIONS (1)
  - Chest discomfort [Recovered/Resolved]
